FAERS Safety Report 8471192-2 (Version None)
Quarter: 2012Q2

REPORT INFORMATION
  Report Type: 
  Country: None (occurrence: None)
  Receive Date: 20120627
  Receipt Date: 20120620
  Transmission Date: 20120825
  Serious: Yes (Death, Other)
  Sender: FDA-Public Use
  Company Number: AU-PFIZER INC-2012122712

PATIENT
  Age: 38 Year
  Sex: Male
  Weight: 149 kg

DRUGS (14)
  1. DIAZEPAM [Suspect]
     Indication: BACK PAIN
     Dosage: UNK
  2. CODEINE [Concomitant]
     Dosage: UNK
  3. MS CONTIN [Suspect]
     Dosage: 160 MG, 1X/DAY
  4. CLONAZEPAM [Suspect]
     Indication: ANXIETY
  5. MS CONTIN [Suspect]
     Indication: PAIN
     Dosage: 100 MG, 1X/DAY
  6. DIAZEPAM [Suspect]
     Indication: ANXIETY
  7. ALPRAZOLAM [Suspect]
     Indication: BACK PAIN
     Dosage: UNK
  8. ALPRAZOLAM [Suspect]
     Indication: AGITATION
  9. CLONAZEPAM [Suspect]
     Indication: AGITATION
  10. ZUCLOPENTHIXOL [Concomitant]
     Dosage: UNK
  11. CLONAZEPAM [Suspect]
     Indication: BACK PAIN
     Dosage: UNK
  12. ALPRAZOLAM [Suspect]
     Indication: ANXIETY
  13. METOCLOPRAMIDE [Concomitant]
     Dosage: UNK
  14. DIAZEPAM [Suspect]
     Indication: AGITATION

REACTIONS (7)
  - TOXICITY TO VARIOUS AGENTS [None]
  - CARDIOMEGALY [None]
  - DRUG ABUSE [None]
  - HEPATIC STEATOSIS [None]
  - ARTERIOSCLEROSIS CORONARY ARTERY [None]
  - FATIGUE [None]
  - SNORING [None]
